FAERS Safety Report 10707713 (Version 1)
Quarter: 2015Q1

REPORT INFORMATION
  Report Type: Report from Study
  Country: US (occurrence: US)
  Receive Date: 20150113
  Receipt Date: 20150113
  Transmission Date: 20150721
  Serious: Yes (Hospitalization, Other)
  Sender: FDA-Public Use
  Company Number: US-GILEAD-2015-0130366

PATIENT
  Age: 75 Year
  Sex: Male

DRUGS (1)
  1. EFAVIRENZ/EMTRICITABINE/TENOFOVIR DISOPROXIL FUMARATE [Suspect]
     Active Substance: EFAVIRENZ\EMTRICITABINE\TENOFOVIR DISOPROXIL FUMARATE
     Indication: HIV INFECTION
     Dosage: 1100 MG, UNK
     Route: 048

REACTIONS (8)
  - Diabetes mellitus [Unknown]
  - Osteomyelitis [Unknown]
  - Haemoglobin decreased [Unknown]
  - Infected skin ulcer [Unknown]
  - Blood pressure inadequately controlled [Unknown]
  - Blood glucose decreased [Unknown]
  - Speech disorder [Unknown]
  - Localised infection [Unknown]
